FAERS Safety Report 25070876 (Version 2)
Quarter: 2025Q1

REPORT INFORMATION
  Report Type: Report from Study
  Country: US (occurrence: US)
  Receive Date: 20250312
  Receipt Date: 20250319
  Transmission Date: 20250409
  Serious: Yes (Hospitalization, Other)
  Sender: ALEXION PHARMACEUTICALS
  Company Number: US-AstraZeneca-CH-00824968A

PATIENT
  Age: 40 Year
  Weight: 137.05 kg

DRUGS (4)
  1. DAPAGLIFLOZIN [Suspect]
     Active Substance: DAPAGLIFLOZIN
     Dosage: 10 MILLIGRAM, QD
  2. COCAINE [Concomitant]
     Active Substance: COCAINE
     Route: 065
  3. HYDRALAZINE [Concomitant]
     Active Substance: HYDRALAZINE HYDROCHLORIDE
     Dosage: 50 MILLIGRAM, TID
     Route: 065
  4. CLONIDINE [Concomitant]
     Active Substance: CLONIDINE
     Dosage: 0.2 MILLIGRAM, TID
     Route: 065

REACTIONS (26)
  - Cardiac failure [Unknown]
  - Suicide attempt [Unknown]
  - Renal disorder [Unknown]
  - Cardiac failure congestive [Unknown]
  - Mental disorder [Unknown]
  - Hyperlipidaemia [Unknown]
  - Left ventricular enlargement [Unknown]
  - Left ventricular hypertrophy [Unknown]
  - Left ventricular dysfunction [Unknown]
  - Myocardial infarction [Unknown]
  - Drug abuse [Unknown]
  - Hypertension [Unknown]
  - Pulmonary oedema [Unknown]
  - Vision blurred [Unknown]
  - Dyspnoea exertional [Unknown]
  - Chest discomfort [Unknown]
  - Dizziness [Unknown]
  - Chest pain [Unknown]
  - Fatigue [Unknown]
  - Oedema peripheral [Unknown]
  - Palpitations [Unknown]
  - Dyspnoea [Unknown]
  - Overdose [Unknown]
  - Product dose omission issue [Unknown]
  - Chronic kidney disease [Unknown]
  - Essential hypertension [Unknown]
